FAERS Safety Report 7650653-X (Version None)
Quarter: 2011Q3

REPORT INFORMATION
  Report Type: 
  Country: None (occurrence: None)
  Receive Date: 20110802
  Receipt Date: 20110720
  Transmission Date: 20111222
  Serious: Yes (Other)
  Sender: FDA-Public Use
  Company Number: US-ASTRAZENECA-2008UW07992

PATIENT
  Age: 37 Year
  Sex: Female
  Weight: 117.5 kg

DRUGS (19)
  1. SEROQUEL [Suspect]
     Indication: BIPOLAR DISORDER
     Dosage: INCLUDING, BUT NOT LIMITED TO 25 MG
     Route: 048
     Dates: start: 20040101, end: 20050401
  2. ZOLOFT [Concomitant]
     Indication: DEPRESSION
     Dates: start: 20050119
  3. DEPAKOTE [Concomitant]
     Indication: BIPOLAR II DISORDER
     Route: 048
     Dates: start: 20050808
  4. RISPERDAL [Concomitant]
     Route: 048
     Dates: start: 20050713
  5. RISPERDAL [Concomitant]
     Dates: start: 20050101
  6. ZOLOFT [Concomitant]
     Route: 048
     Dates: start: 20050103
  7. IBUPROFEN [Concomitant]
     Dates: start: 20050419
  8. ZOVIA 1/35E-21 [Concomitant]
     Dosage: 1/35 EVERYDAY
     Route: 048
     Dates: start: 20010801
  9. AMBIEN [Concomitant]
     Route: 048
     Dates: start: 20050424
  10. METFORMIN HCL [Concomitant]
     Indication: DIABETES MELLITUS
     Route: 048
     Dates: start: 20060222
  11. SEROQUEL [Suspect]
     Indication: DEPRESSION
     Dosage: INCLUDING, BUT NOT LIMITED TO 25 MG
     Route: 048
     Dates: start: 20040101, end: 20050401
  12. SEROQUEL [Suspect]
     Route: 048
     Dates: start: 20050112
  13. GEODON [Concomitant]
     Indication: ANGER
     Dates: start: 20060101, end: 20070101
  14. SEROQUEL [Suspect]
     Route: 048
     Dates: start: 20050112
  15. SEROQUEL [Suspect]
     Route: 048
     Dates: start: 20050119
  16. GEODON [Concomitant]
     Route: 048
     Dates: start: 20060308
  17. VITAMIN D [Concomitant]
     Route: 048
     Dates: start: 20050112
  18. SEROQUEL [Suspect]
     Route: 048
     Dates: start: 20050119
  19. IBUPROFEN [Concomitant]
     Route: 048
     Dates: start: 20020825

REACTIONS (6)
  - PALPITATIONS [None]
  - HYPERLIPIDAEMIA [None]
  - BLOOD CHOLESTEROL INCREASED [None]
  - BLOOD GLUCOSE INCREASED [None]
  - TYPE 2 DIABETES MELLITUS [None]
  - POST-TRAUMATIC STRESS DISORDER [None]
